FAERS Safety Report 4784447-X (Version None)
Quarter: 2005Q3

REPORT INFORMATION
  Report Type: 
  Country: None (occurrence: None)
  Receive Date: 20050929
  Receipt Date: 20050929
  Transmission Date: 20060218
  Serious: Yes (Other)
  Sender: FDA-Public Use
  Company Number: None

PATIENT
  Age: 33 Year
  Sex: Female
  Weight: 61.2356 kg

DRUGS (3)
  1. PROVENTIL [Suspect]
     Dosage: 1 PO Q3-4 PRN PO
     Route: 048
     Dates: start: 20050801, end: 20050927
  2. SOLU-MEDROL [Concomitant]
  3. DUO NEBS. [Concomitant]

REACTIONS (2)
  - DRUG EFFECT DECREASED [None]
  - THERAPEUTIC RESPONSE UNEXPECTED WITH DRUG SUBSTITUTION [None]
